FAERS Safety Report 17156885 (Version 2)
Quarter: 2020Q2

REPORT INFORMATION
  Report Type: Spontaneous
  Country: DE (occurrence: DE)
  Receive Date: 20191216
  Receipt Date: 20200527
  Transmission Date: 20200713
  Serious: Yes (Hospitalization)
  Sender: FDA-Public Use
  Company Number: DE-AUROBINDO-AUR-APL-2019-104768

PATIENT
  Age: 59 Year
  Sex: Male

DRUGS (19)
  1. SERTRALINE [Suspect]
     Active Substance: SERTRALINE HYDROCHLORIDE
     Indication: DEPRESSIVE SYMPTOM
     Dosage: 150 MILLIGRAM, ONCE A DAY
     Route: 065
     Dates: start: 20190416
  2. PROMETHAZINE [Suspect]
     Active Substance: PROMETHAZINE HYDROCHLORIDE
     Indication: DEPRESSIVE SYMPTOM
     Dosage: 25 MILLIGRAM, ONCE A DAY
     Dates: start: 20190403, end: 20190414
  3. TRAZODONE [Suspect]
     Active Substance: TRAZODONE HYDROCHLORIDE
     Indication: DEPRESSIVE SYMPTOM
     Dosage: 25-100 MG
     Route: 065
     Dates: start: 20190321, end: 20190401
  4. RISPERIDONE. [Suspect]
     Active Substance: RISPERIDONE
     Indication: RESTLESSNESS
     Dosage: 2 MILLIGRAM, ONCE A DAY
     Dates: start: 20190417, end: 20190423
  5. ZOPICLONE [Suspect]
     Active Substance: ZOPICLONE
     Indication: SLEEP DISORDER
     Dosage: 3.75 MILLIGRAM
     Route: 065
     Dates: start: 20190401
  6. PROMETHAZINE [Suspect]
     Active Substance: PROMETHAZINE HYDROCHLORIDE
     Indication: RESTLESSNESS
     Dosage: 150 MILLIGRAM
     Route: 065
     Dates: start: 20190423, end: 20190426
  7. PANTOPRAZOL [Concomitant]
     Active Substance: PANTOPRAZOLE SODIUM
     Indication: PRODUCT USED FOR UNKNOWN INDICATION
     Dosage: 20 MILLIGRAM, FOR MONTHS
     Route: 065
  8. TRAZODONE [Suspect]
     Active Substance: TRAZODONE HYDROCHLORIDE
     Indication: SLEEP DISORDER
     Dosage: 100 MILLIGRAM, ONCE A DAY
     Route: 065
     Dates: start: 20190402, end: 20190414
  9. SERTRALINE [Suspect]
     Active Substance: SERTRALINE HYDROCHLORIDE
     Indication: RESTLESSNESS
     Dosage: 100 MILLIGRAM, ONCE A DAY
     Route: 065
     Dates: start: 20190403, end: 20190415
  10. BISOPROLOL [Concomitant]
     Active Substance: BISOPROLOL
     Indication: PRODUCT USED FOR UNKNOWN INDICATION
     Dosage: 2.5 MILLIGRAM, FOR MONTHS
     Route: 065
  11. RISPERIDONE. [Suspect]
     Active Substance: RISPERIDONE
     Indication: DEPRESSIVE SYMPTOM
     Dosage: 1 MILLIGRAM, ONCE A DAY
     Dates: start: 20190318, end: 20190416
  12. RISPERIDONE. [Suspect]
     Active Substance: RISPERIDONE
     Indication: SLEEP DISORDER
     Dosage: 1 MILLIGRAM
     Route: 065
     Dates: start: 20190424, end: 20190426
  13. ZOPICLONE [Suspect]
     Active Substance: ZOPICLONE
     Indication: RESTLESSNESS
     Dosage: 7.5 MILLIGRAM
     Route: 065
     Dates: start: 20190318, end: 20190331
  14. ZOPICLONE [Suspect]
     Active Substance: ZOPICLONE
     Indication: DEPRESSIVE SYMPTOM
  15. PROMETHAZINE [Suspect]
     Active Substance: PROMETHAZINE HYDROCHLORIDE
     Indication: SLEEP DISORDER
     Dosage: 50 MILLIGRAM, ONCE A DAY
     Route: 065
     Dates: start: 20190415, end: 20190422
  16. TRAZODONE [Suspect]
     Active Substance: TRAZODONE HYDROCHLORIDE
     Indication: RESTLESSNESS
     Dosage: 125 MILLIGRAM, ONCE A DAY
     Dates: start: 20190415, end: 20190423
  17. SERTRALINE [Suspect]
     Active Substance: SERTRALINE HYDROCHLORIDE
     Indication: SLEEP DISORDER
     Dosage: 125 MILLIGRAM
     Route: 065
     Dates: end: 20190402
  18. SERTRALINE [Suspect]
     Active Substance: SERTRALINE HYDROCHLORIDE
     Indication: MAJOR DEPRESSION
  19. TRAZODONE [Suspect]
     Active Substance: TRAZODONE HYDROCHLORIDE
     Indication: MAJOR DEPRESSION
     Dosage: UNK
     Route: 065
     Dates: start: 20190424, end: 20190426

REACTIONS (4)
  - Akathisia [Recovered/Resolved]
  - Obsessive thoughts [Recovered/Resolved]
  - General symptom [Recovered/Resolved]
  - Psychomotor hyperactivity [Recovered/Resolved]
